FAERS Safety Report 7593307-0 (Version None)
Quarter: 2011Q3

REPORT INFORMATION
  Report Type: 
  Country: None (occurrence: None)
  Receive Date: 20110706
  Receipt Date: 20110623
  Transmission Date: 20111222
  Serious: Yes (Hospitalization)
  Sender: FDA-Public Use
  Company Number: SE-CELGENEUS-150-20785-11061191

PATIENT
  Sex: Male
  Weight: 86 kg

DRUGS (8)
  1. PREDNISONE [Suspect]
     Indication: MULTIPLE MYELOMA
     Route: 048
     Dates: start: 20110518, end: 20110521
  2. THALIDOMIDE [Suspect]
     Indication: MULTIPLE MYELOMA
     Route: 048
     Dates: start: 20110518, end: 20110608
  3. ALLOPURINOL [Concomitant]
     Indication: GOUT
     Dosage: 300 MILLIGRAM
     Route: 048
     Dates: end: 20110615
  4. ACETYLSALICYLIC ACID SRT [Concomitant]
     Indication: PROPHYLAXIS
     Route: 048
     Dates: end: 20110615
  5. MORPHINE [Concomitant]
     Indication: PAIN
     Route: 048
     Dates: start: 20110512, end: 20110615
  6. ACETAMINOPHEN [Concomitant]
     Indication: PAIN
     Route: 048
     Dates: start: 20110512, end: 20110616
  7. MELPHALAN HYDROCHLORIDE [Suspect]
     Indication: MULTIPLE MYELOMA
     Route: 048
     Dates: start: 20110518, end: 20110521
  8. ARANESP [Concomitant]
     Route: 058
     Dates: start: 20110511, end: 20110615

REACTIONS (2)
  - APRAXIA [None]
  - DIZZINESS [None]
